FAERS Safety Report 7628301-4 (Version None)
Quarter: 2011Q3

REPORT INFORMATION
  Report Type: 
  Country: None (occurrence: None)
  Receive Date: 20110714
  Receipt Date: 20110627
  Transmission Date: 20111222
  Serious: Yes (Hospitalization, Other)
  Sender: FDA-Public Use
  Company Number: 017999

PATIENT
  Sex: Female

DRUGS (3)
  1. METFORMIN HCL [Suspect]
     Dosage: MG, 3X/DAY;
  2. GLYBURIDE [Suspect]
     Dosage: MG/24H;
  3. PEGAPTANIB SODIUM (PEGATANIB SODIUM) UNKNOWN [Suspect]
     Indication: DIABETIC RETINAL OEDEMA
     Dosage: 0.3 MG, INTRAVITREAL INJ. ONCE EVERY 6 WEEKS, INTRAOCULAR
     Route: 031
     Dates: start: 20110513

REACTIONS (1)
  - CEREBROVASCULAR ACCIDENT [None]
